FAERS Safety Report 4896812-0 (Version None)
Quarter: 2006Q1

REPORT INFORMATION
  Report Type: 
  Country: None (occurrence: None)
  Receive Date: 20060126
  Receipt Date: 20060113
  Transmission Date: 20060701
  Serious: Yes (Hospitalization)
  Sender: FDA-Public Use
  Company Number: 221123

PATIENT
  Age: 31 Year
  Sex: Female
  Weight: 58 kg

DRUGS (12)
  1. MABTHERA (RITUXIMAB) CONC FOR SOLUTION FOR INFUSION [Suspect]
     Indication: SYSTEMIC LUPUS ERYTHEMATOSUS
     Dosage: 500 MG, 1/WEEK, INTRAVENOUS
     Route: 042
     Dates: start: 20051219, end: 20060102
  2. BROMOCRIPTINE MESYLATE [Concomitant]
  3. CHLOROQUINE (CHLOROQUINE) [Concomitant]
  4. METHOTREXATE [Concomitant]
  5. LEFLUNOMIDE [Concomitant]
  6. CYCLOSPORINE [Concomitant]
  7. MYCOPHENOLIC ACID [Concomitant]
  8. PREDNISONE [Concomitant]
  9. RANITIDINE [Concomitant]
  10. ACETAMINOPHEN [Concomitant]
  11. SENNOSIDES (SENNOSIDES) [Concomitant]
  12. LEVOTHYROXINE SODIUM [Concomitant]

REACTIONS (1)
  - PANCREATITIS [None]
